FAERS Safety Report 8258188-0 (Version None)
Quarter: 2012Q2

REPORT INFORMATION
  Report Type: 
  Country: None (occurrence: None)
  Receive Date: 20120404
  Receipt Date: 20120402
  Transmission Date: 20120825
  Serious: Yes (Other)
  Sender: FDA-Public Use
  Company Number: DE-JNJFOC-20120312498

PATIENT
  Sex: Male

DRUGS (2)
  1. MINOXIDIL [Suspect]
     Route: 061
  2. MINOXIDIL [Suspect]
     Indication: ANDROGENETIC ALOPECIA
     Dosage: UNSPECIFIED DOSE
     Route: 061
     Dates: start: 20110201, end: 20120301

REACTIONS (1)
  - PSORIASIS [None]
